FAERS Safety Report 10082643 (Version 1)
Quarter: 2014Q2

REPORT INFORMATION
  Report Type: Spontaneous
  Country: BR (occurrence: BR)
  Receive Date: 20140416
  Receipt Date: 20140416
  Transmission Date: 20141212
  Serious: Yes (Other)
  Sender: FDA-Public Use
  Company Number: BR-PFIZER INC-2014101902

PATIENT
  Age: 66 Year
  Sex: Male
  Weight: 62.5 kg

DRUGS (5)
  1. LIPITOR [Suspect]
     Indication: BLOOD CHOLESTEROL
     Dosage: 40 MG, DAILY
     Route: 048
     Dates: start: 2006
  2. DAFLON [Concomitant]
     Dosage: 500, UNK
     Dates: start: 201308
  3. DIOSMIN/HESPERIDIN [Concomitant]
     Dosage: UNK
  4. GLIOTEN [Concomitant]
     Dosage: UNK
     Dates: start: 201308
  5. ZETIA [Concomitant]
     Dosage: UNK

REACTIONS (5)
  - Accident [Unknown]
  - Rib fracture [Unknown]
  - Scapula fracture [Unknown]
  - Hypokinesia [Unknown]
  - Weight decreased [Not Recovered/Not Resolved]
